FAERS Safety Report 18451871 (Version 5)
Quarter: 2023Q2

REPORT INFORMATION
  Report Type: Report from Study
  Country: CA (occurrence: CA)
  Receive Date: 20201102
  Receipt Date: 20230418
  Transmission Date: 20230722
  Serious: Yes (Hospitalization)
  Sender: FDA-Public Use
  Company Number: CA-GLAXOSMITHKLINE-CA2020AMR208997

PATIENT

DRUGS (8)
  1. FLUTICASONE FUROATE\VILANTEROL TRIFENATATE [Suspect]
     Active Substance: FLUTICASONE FUROATE\VILANTEROL TRIFENATATE
     Indication: Asthma
     Dosage: 100 MG, Z (MONTHLY)
  2. NUCALA [Suspect]
     Active Substance: MEPOLIZUMAB
     Indication: Asthma
     Dosage: 100 MG, Q4W
     Route: 058
     Dates: start: 20201023
  3. MEPOLIZUMAB [Suspect]
     Active Substance: MEPOLIZUMAB
     Indication: Asthma
     Dosage: 100 MG, Q4W
     Route: 058
     Dates: start: 20201023
  4. MOXIFLOXACIN [Concomitant]
     Active Substance: MOXIFLOXACIN
     Indication: Product used for unknown indication
     Dosage: UNK 0.5 % X 7DAYS
     Dates: start: 20221216
  5. NEVANAC [Concomitant]
     Active Substance: NEPAFENAC
     Indication: Product used for unknown indication
     Dosage: UNK 0.1 % X 1 MONTH
     Dates: start: 20221216
  6. PREDNISOLONE [Concomitant]
     Active Substance: PREDNISOLONE
     Indication: Product used for unknown indication
     Dosage: UNK 1 % X 1 MONTH
     Dates: start: 20221216
  7. PREGABALIN [Concomitant]
     Active Substance: PREGABALIN
     Indication: Product used for unknown indication
     Dosage: 125 MG, QD (25MG 2 CAPS PO MORNING QD AND 75MG 1 CAP PO EVENING QD)
     Route: 048
     Dates: start: 20221207
  8. LUMIGAN [Concomitant]
     Active Substance: BIMATOPROST
     Indication: Product used for unknown indication
     Dosage: UNK 5 DAYS

REACTIONS (9)
  - Hospitalisation [Unknown]
  - Asthma [Unknown]
  - Sleep disorder due to a general medical condition [Not Recovered/Not Resolved]
  - Dyspnoea [Not Recovered/Not Resolved]
  - Wheezing [Not Recovered/Not Resolved]
  - Impaired quality of life [Unknown]
  - Loss of personal independence in daily activities [Not Recovered/Not Resolved]
  - Product prescribing issue [Unknown]
  - Product use issue [Unknown]
